FAERS Safety Report 10224044 (Version 1)
Quarter: 2014Q2

REPORT INFORMATION
  Report Type: Report from Study
  Country: CA (occurrence: CA)
  Receive Date: 20140609
  Receipt Date: 20140609
  Transmission Date: 20141212
  Serious: Yes (Hospitalization)
  Sender: FDA-Public Use
  Company Number: CA-JNJFOC-20140520108

PATIENT
  Age: 16 Year
  Sex: Female
  Weight: 43 kg

DRUGS (4)
  1. REMICADE [Suspect]
     Indication: CROHN^S DISEASE
     Route: 042
     Dates: start: 20140313
  2. BENADRYL [Concomitant]
     Indication: PREMEDICATION
     Dosage: 25-50 MG
     Route: 042
  3. TYLENOL [Concomitant]
     Indication: PREMEDICATION
     Route: 048
  4. HYDROCORTISONE [Concomitant]
     Indication: PREMEDICATION
     Route: 065

REACTIONS (1)
  - Crohn^s disease [Unknown]
